FAERS Safety Report 9455728 (Version 1)
Quarter: 2013Q3

REPORT INFORMATION
  Report Type: Spontaneous
  Country: NO (occurrence: NO)
  Receive Date: 20130813
  Receipt Date: 20130813
  Transmission Date: 20140515
  Serious: Yes (Hospitalization)
  Sender: FDA-Public Use
  Company Number: NO-TEVA-422490ISR

PATIENT
  Age: 63 Year
  Sex: Female

DRUGS (4)
  1. TRAMADOL RATIOPHARM [Suspect]
     Indication: NECK PAIN
     Dosage: 150 MILLIGRAM DAILY;
     Route: 048
     Dates: start: 20130712, end: 20130712
  2. ALBYL-E [Concomitant]
     Dosage: 75 MILLIGRAM DAILY;
     Route: 048
  3. PARACET [Concomitant]
     Indication: PAIN
     Dosage: 1500 MILLIGRAM DAILY;
  4. IMDUR [Concomitant]
     Dosage: 60 MILLIGRAM DAILY;
     Route: 048

REACTIONS (4)
  - Muscle spasms [Recovered/Resolved]
  - Tremor [Recovered/Resolved]
  - Heart rate increased [Recovered/Resolved]
  - Blood pressure increased [Recovered/Resolved]
